FAERS Safety Report 10445044 (Version 2)
Quarter: 2014Q4

REPORT INFORMATION
  Report Type: Spontaneous
  Country: US (occurrence: US)
  Receive Date: 20140910
  Receipt Date: 20141209
  Transmission Date: 20150528
  Serious: Yes (Other)
  Sender: FDA-Public Use
  Company Number: US-BAYER-2014-132934

PATIENT
  Age: 32 Year
  Sex: Female
  Weight: 69.39 kg

DRUGS (4)
  1. IBUPROFEN. [Concomitant]
     Active Substance: IBUPROFEN
     Indication: MUSCLE SPASMS
  2. KEFLEX [Concomitant]
     Active Substance: CEPHALEXIN
     Dosage: 1500 MG, TID X 7 DAYS
     Route: 048
  3. IBUPROFEN. [Concomitant]
     Active Substance: IBUPROFEN
     Indication: PAIN
     Dosage: 800 MG, UNK
  4. MIRENA [Suspect]
     Active Substance: LEVONORGESTREL
     Indication: CONTRACEPTION
     Dosage: 20 MCG/24HR, CONT
     Route: 015
     Dates: start: 20140203, end: 20140806

REACTIONS (8)
  - Acne [Recovered/Resolved]
  - Acne cystic [Recovered/Resolved]
  - Ovarian cyst [Recovered/Resolved]
  - Genital haemorrhage [None]
  - Abdominal pain [None]
  - Adnexa uteri pain [Recovered/Resolved]
  - Ovarian cyst [Recovered/Resolved]
  - Abdominal pain [Recovered/Resolved]

NARRATIVE: CASE EVENT DATE: 2014
